FAERS Safety Report 19842148 (Version 1)
Quarter: 2021Q3

REPORT INFORMATION
  Report Type: Other
  Country: US (occurrence: US)
  Receive Date: 20210916
  Receipt Date: 20210916
  Transmission Date: 20211014
  Serious: No
  Sender: FDA-Public Use
  Company Number: US-LEADIANT BIOSCIENCES INC-2021STPI000158

PATIENT
  Sex: Female

DRUGS (1)
  1. MATULANE [Suspect]
     Active Substance: PROCARBAZINE HYDROCHLORIDE
     Indication: HODGKIN^S DISEASE
     Dosage: 50 MILLIGRAM, TAKE 4 CAPS, QD ON DAYS 1?7 OF EACH 21?DAY CYCLE
     Route: 048
     Dates: start: 20210506

REACTIONS (1)
  - Dizziness [Unknown]
